FAERS Safety Report 5122405-6 (Version None)
Quarter: 2006Q4

REPORT INFORMATION
  Report Type: 
  Country: None (occurrence: None)
  Receive Date: 20061004
  Receipt Date: 20060921
  Transmission Date: 20070319
  Serious: Yes (Other)
  Sender: FDA-Public Use
  Company Number: FABR-11536

PATIENT
  Age: 20 Year
  Sex: Male
  Weight: 63 kg

DRUGS (3)
  1. FABRAZYME [Suspect]
     Indication: FABRY'S DISEASE
     Dosage: 60 MG Q2WKS IV
     Route: 042
     Dates: start: 20060407, end: 20060522
  2. BENADRYL [Concomitant]
  3. TYLENOL [Concomitant]

REACTIONS (20)
  - ANXIETY [None]
  - ARTHRALGIA [None]
  - AURICULAR SWELLING [None]
  - BLOOD PRESSURE INCREASED [None]
  - BRONCHOSPASM [None]
  - CHEST PAIN [None]
  - COUGH [None]
  - DYSPNOEA [None]
  - ERYTHEMA [None]
  - FATIGUE [None]
  - FEELING HOT [None]
  - FLUSHING [None]
  - HEART RATE INCREASED [None]
  - HYPERTENSION [None]
  - MALAISE [None]
  - PAIN IN EXTREMITY [None]
  - PRURITUS [None]
  - RASH MACULAR [None]
  - RESPIRATORY RATE INCREASED [None]
  - TACHYCARDIA [None]
